FAERS Safety Report 7668827-0 (Version None)
Quarter: 2011Q3

REPORT INFORMATION
  Report Type: 
  Country: None (occurrence: None)
  Receive Date: 20110808
  Receipt Date: 20110804
  Transmission Date: 20111222
  Serious: Yes (Hospitalization)
  Sender: FDA-Public Use
  Company Number: CH-BRACCO-000054

PATIENT
  Sex: Male

DRUGS (11)
  1. SIMCORA [Concomitant]
     Dosage: HALF A TABLET OF 40 MG
  2. METFORMIN HCL [Concomitant]
  3. PERINDOPRIL ERBUMINE [Concomitant]
  4. ACETAMINOPHEN [Concomitant]
  5. PRAXILENE [Concomitant]
  6. ASPIRIN [Concomitant]
     Route: 048
     Dates: start: 20101207
  7. IOPAMIDOL [Suspect]
     Indication: SPINAL MYELOGRAM
     Dosage: 1200 MG
     Route: 037
     Dates: start: 20101206, end: 20101206
  8. METOPROLOL TARTRATE [Concomitant]
     Route: 048
  9. CELEBREX [Concomitant]
  10. BETOPTIC [Concomitant]
  11. IOPAMIDOL [Suspect]
     Indication: SPINAL COLUMN STENOSIS
     Dosage: 1200 MG
     Route: 037
     Dates: start: 20101206, end: 20101206

REACTIONS (3)
  - INFECTION [None]
  - SEPSIS [None]
  - MENINGITIS BACTERIAL [None]
